FAERS Safety Report 6152499-0 (Version None)
Quarter: 2009Q2

REPORT INFORMATION
  Report Type: 
  Country: None (occurrence: None)
  Receive Date: 20090413
  Receipt Date: 20090402
  Transmission Date: 20091009
  Serious: Yes (Hospitalization, Other)
  Sender: FDA-Public Use
  Company Number: PHHY2009DE12775

PATIENT
  Sex: Female

DRUGS (4)
  1. DIOVAN [Suspect]
     Indication: HYPERTENSION
     Dosage: 80 MG/DAY
     Route: 048
     Dates: start: 20080401, end: 20081201
  2. DIOVAN [Suspect]
     Dosage: 40 MG/DAY
     Route: 048
     Dates: start: 20081201
  3. IRON [Concomitant]
     Dosage: UNK
     Route: 048
     Dates: start: 20080201
  4. OMEPRAZOLE [Concomitant]
     Dosage: UNK
     Dates: start: 20080101, end: 20080101

REACTIONS (5)
  - BLOOD CALCIUM INCREASED [None]
  - BLOOD PARATHYROID HORMONE INCREASED [None]
  - GASTRIC HAEMORRHAGE [None]
  - GLOSSODYNIA [None]
  - MELAENA [None]
